FAERS Safety Report 9656988 (Version 1)
Quarter: 2013Q4

REPORT INFORMATION
  Report Type: Spontaneous
  Country: US (occurrence: US)
  Receive Date: 20131030
  Receipt Date: 20131030
  Transmission Date: 20140711
  Serious: No
  Sender: FDA-Public Use
  Company Number: US-PFIZER INC-2013309995

PATIENT
  Age: 46 Year
  Sex: Female
  Weight: 70.3 kg

DRUGS (4)
  1. LYRICA [Suspect]
     Indication: MIGRAINE
     Dosage: 25 MG, 1X/DAY
     Dates: start: 20130603
  2. LYRICA [Suspect]
     Dosage: 50 MG, 1X/DAY
     Dates: start: 2013
  3. LYRICA [Suspect]
     Dosage: 75 MG, 1X/DAY
     Dates: start: 2013
  4. LYRICA [Suspect]
     Dosage: 150 MG, 1X/DAY
     Dates: start: 2013

REACTIONS (3)
  - Off label use [Unknown]
  - Insomnia [Unknown]
  - Dry mouth [Not Recovered/Not Resolved]
